FAERS Safety Report 19154555 (Version 3)
Quarter: 2021Q2

REPORT INFORMATION
  Report Type: Report from Study
  Country: TW (occurrence: TW)
  Receive Date: 20210419
  Receipt Date: 20210526
  Transmission Date: 20210717
  Serious: Yes (Hospitalization)
  Sender: FDA-Public Use
  Company Number: TW-BRISTOL-MYERS SQUIBB COMPANY-BMS-2021-035820

PATIENT
  Age: 55 Year
  Sex: Male

DRUGS (9)
  1. NIVOLUMAB [Suspect]
     Active Substance: NIVOLUMAB
     Dosage: THIRD DOSE ?1 MILLILITRE PER KILOGRAM, Q3WK
     Route: 042
     Dates: start: 20210421
  2. NIVOLUMAB [Suspect]
     Active Substance: NIVOLUMAB
     Indication: BLADDER CANCER
     Dosage: 1 MILLIGRAM/KILOGRAM, Q3WK
     Route: 042
     Dates: start: 20210217
  3. IPILIMUMAB [Suspect]
     Active Substance: IPILIMUMAB
     Dosage: THIRD DOSE?3MG/KG EVERY 21 DAYS
     Route: 042
     Dates: start: 20210421
  4. NIVOLUMAB [Suspect]
     Active Substance: NIVOLUMAB
     Dosage: SECOND DOSE ?1 MILLILITRE PER KILOGRAM, Q3WK
     Route: 042
     Dates: start: 20210310
  5. NOVOMIX [Concomitant]
     Active Substance: INSULIN ASPART
     Indication: PRODUCT USED FOR UNKNOWN INDICATION
     Dosage: 30 FLEPEN? 300 IU/3MI 22 IU(AM)/ 20 IU( DINNER)
     Route: 065
     Dates: start: 20210405
  6. TRAJENTA [Concomitant]
     Active Substance: LINAGLIPTIN
     Indication: PRODUCT USED FOR UNKNOWN INDICATION
     Dosage: 5 MILLIGRAM, QD
     Route: 065
     Dates: start: 20210405
  7. SILYMARIN [SILYBUM MARIANUM] [Concomitant]
     Active Substance: DIETARY SUPPLEMENT\HERBALS\MILK THISTLE
     Indication: PRODUCT USED FOR UNKNOWN INDICATION
     Dosage: 150 MILLIGRAM/CAPSULE, ONE CAPSULE  BID
     Route: 065
     Dates: start: 20210405
  8. IPILIMUMAB [Suspect]
     Active Substance: IPILIMUMAB
     Indication: BLADDER CANCER
     Dosage: 3MG/KG EVERY 21 DAYS (0.9% NORMAL SALINE INFUSION AROUND 30 MINUTES IN BETWEEN)
     Route: 042
     Dates: start: 20210217
  9. IPILIMUMAB [Suspect]
     Active Substance: IPILIMUMAB
     Dosage: SECOND DOSE?3MG/KG EVERY 21 DAYS
     Route: 042
     Dates: start: 20210310

REACTIONS (4)
  - Aspartate aminotransferase increased [Unknown]
  - Bladder hypertrophy [Unknown]
  - Alanine aminotransferase increased [Unknown]
  - Cystitis [Unknown]

NARRATIVE: CASE EVENT DATE: 20210412
